FAERS Safety Report 9525441 (Version 1)
Quarter: 2013Q3

REPORT INFORMATION
  Report Type: Spontaneous
  Country: US (occurrence: None)
  Receive Date: 20130913
  Receipt Date: 20130913
  Transmission Date: 20140515
  Serious: Yes (Hospitalization)
  Sender: FDA-Public Use
  Company Number: None

PATIENT
  Age: 54 Year
  Sex: Female
  Weight: 155 kg

DRUGS (9)
  1. PIOGLITAZONE [Suspect]
     Indication: TYPE 2 DIABETES MELLITUS
     Dosage: 15 MG  QD  ORAL
     Route: 048
     Dates: start: 20130101, end: 20130909
  2. BYSTOLIC [Concomitant]
  3. VERAPAMIL [Concomitant]
  4. IRBESARTAN [Concomitant]
  5. ZANCTAC [Concomitant]
  6. TRAJENTA [Concomitant]
  7. METFORMIN [Concomitant]
  8. NOVOLOG [Concomitant]
  9. LEVEMIR [Concomitant]

REACTIONS (2)
  - Cardiac failure congestive [None]
  - Product substitution issue [None]
